FAERS Safety Report 8085440-4 (Version None)
Quarter: 2012Q1

REPORT INFORMATION
  Report Type: 
  Country: None (occurrence: None)
  Receive Date: 20120128
  Receipt Date: 20110411
  Transmission Date: 20120608
  Serious: No
  Sender: FDA-Public Use
  Company Number: US-ABBOTT-11P-163-0706588-00

PATIENT
  Age: 37 Year
  Sex: Female

DRUGS (4)
  1. LORAZEPAM [Concomitant]
     Indication: ANXIETY
     Dosage: AS NEEDED
  2. HUMIRA [Suspect]
     Indication: CROHN'S DISEASE
     Dosage: SECONDARY LOADING DOSE
     Dates: start: 20110205
  3. IMURAN [Concomitant]
     Indication: CROHN'S DISEASE
  4. UNKNOWN MEDICATION [Concomitant]
     Indication: CONTRACEPTION
     Dosage: DAILY

REACTIONS (4)
  - DEVICE MALFUNCTION [None]
  - INCORRECT DOSE ADMINISTERED [None]
  - INJECTION SITE PRURITUS [None]
  - INJECTION SITE ERYTHEMA [None]
